FAERS Safety Report 9522767 (Version 2)
Quarter: 2013Q3

REPORT INFORMATION
  Report Type: Report from Study
  Country: GB (occurrence: GB)
  Receive Date: 20130913
  Receipt Date: 20130913
  Transmission Date: 20140515
  Serious: Yes (Life-Threatening, Hospitalization)
  Sender: FDA-Public Use
  Company Number: GB-B.I. PHARMACEUTICALS,INC./RIDGEFIELD-2013-BI-11187II

PATIENT
  Age: 62 Year
  Sex: Female
  Weight: 50.1 kg

DRUGS (13)
  1. AFATINIB [Suspect]
     Indication: NON-SMALL CELL LUNG CANCER
     Dosage: 40 MG
     Route: 048
     Dates: start: 20130405, end: 20130418
  2. AFATINIB [Suspect]
     Dosage: 30 MG
     Route: 048
     Dates: start: 20130429, end: 20130622
  3. TRAMADOL [Concomitant]
     Indication: PAIN
     Route: 048
  4. PARACETAMOL [Concomitant]
     Indication: PAIN
     Dosage: 2 G
     Route: 048
  5. ORAMORPH [Concomitant]
     Indication: PAIN
     Dosage: 60 MG
     Route: 048
  6. SENOKOT [Concomitant]
     Indication: CONSTIPATION
     Dosage: 360 MG
     Route: 048
     Dates: start: 20130225
  7. LACTULOSE [Concomitant]
     Indication: CONSTIPATION
     Dosage: 20 ML
     Route: 048
  8. PROCYCLIDINE [Concomitant]
     Indication: SCHIZOPHRENIA
     Dosage: 0.0333 ANZ
     Route: 030
     Dates: start: 1980
  9. CHLORHEXIDINE MOUTHWASH [Concomitant]
     Dosage: 20 ML
     Dates: start: 20130402
  10. SUCRALFATE [Concomitant]
     Indication: MUCOSAL INFLAMMATION
     Dosage: 20 ML
     Route: 048
     Dates: start: 20130402
  11. DIPROBASE CREME [Concomitant]
     Indication: RASH
     Route: 061
     Dates: start: 20130403
  12. CLINDAMYCIN [Concomitant]
     Indication: RASH
     Dosage: FORMULATION: LOTION
     Route: 061
     Dates: start: 20130422
  13. LOPERAMIDE [Concomitant]
     Indication: DIARRHOEA
     Dosage: 2 MG
     Route: 048

REACTIONS (9)
  - Anaemia [Not Recovered/Not Resolved]
  - Dehydration [Unknown]
  - Fatigue [Unknown]
  - Decreased appetite [Unknown]
  - Pyrexia [Recovered/Resolved]
  - Diarrhoea [Recovered/Resolved]
  - Rash [Not Recovered/Not Resolved]
  - Diarrhoea [Unknown]
  - Mucosal inflammation [Unknown]
